FAERS Safety Report 17022409 (Version 1)
Quarter: 2019Q4

REPORT INFORMATION
  Report Type: Spontaneous
  Country: US (occurrence: US)
  Receive Date: 20191008
  Receipt Date: 20191008
  Transmission Date: 20200122
  Serious: No
  Sender: FDA-Public Use
  Company Number: None

PATIENT
  Age: 65 Year
  Sex: Female

DRUGS (1)
  1. AFINITOR [Suspect]
     Active Substance: EVEROLIMUS
     Indication: RENAL CANCER
     Route: 048
     Dates: start: 20190430

REACTIONS (4)
  - Pharyngeal swelling [None]
  - Mouth swelling [None]
  - Hypersensitivity [None]
  - Swollen tongue [None]

NARRATIVE: CASE EVENT DATE: 20190904
